FAERS Safety Report 6969410-2 (Version None)
Quarter: 2010Q3

REPORT INFORMATION
  Report Type: 
  Country: None (occurrence: None)
  Receive Date: 20100902
  Receipt Date: 20100820
  Transmission Date: 20110219
  Serious: Yes (Death)
  Sender: FDA-Public Use
  Company Number: DSJ-2010-14152

PATIENT
  Sex: Female

DRUGS (1)
  1. BENICAR [Suspect]
     Indication: HYPERTENSION
     Dosage: (1 IN 1 D), PER ORAL
     Route: 048

REACTIONS (1)
  - DEATH [None]
